FAERS Safety Report 9199428 (Version 1)
Quarter: 2013Q1

REPORT INFORMATION
  Report Type: Spontaneous
  Country: US (occurrence: US)
  Receive Date: 20130329
  Receipt Date: 20130329
  Transmission Date: 20140127
  Serious: No
  Sender: FDA-Public Use
  Company Number: US-PFIZER INC-2013096082

PATIENT
  Age: 66 Year
  Sex: Male
  Weight: 87.53 kg

DRUGS (2)
  1. VIAGRA [Suspect]
     Indication: ERECTILE DYSFUNCTION
     Dosage: 100 MG, SINGLE
     Dates: start: 20130320, end: 20130320
  2. CIALIS [Suspect]
     Dosage: 5 MG, UNK

REACTIONS (2)
  - Drug ineffective [Unknown]
  - Drug effect decreased [Unknown]
